FAERS Safety Report 16670851 (Version 1)
Quarter: 2019Q3

REPORT INFORMATION
  Report Type: Spontaneous
  Country: US (occurrence: US)
  Receive Date: 20190805
  Receipt Date: 20190805
  Transmission Date: 20191004
  Serious: No
  Sender: FDA-Public Use
  Company Number: US-RADIUS HEALTH INC.-2019US001932

PATIENT
  Age: 70 Year
  Sex: Female

DRUGS (1)
  1. TYMLOS [Suspect]
     Active Substance: ABALOPARATIDE
     Indication: OSTEOPOROSIS POSTMENOPAUSAL
     Dosage: 80 MCG, QD
     Route: 058

REACTIONS (8)
  - Gastrooesophageal reflux disease [Unknown]
  - Product administration error [Unknown]
  - Nervousness [Unknown]
  - Fatigue [Unknown]
  - Dizziness [Unknown]
  - Injection site haemorrhage [Unknown]
  - Abdominal distension [Unknown]
  - Injection site bruising [Unknown]

NARRATIVE: CASE EVENT DATE: 20190531
